FAERS Safety Report 9922098 (Version 3)
Quarter: 2014Q2

REPORT INFORMATION
  Report Type: Spontaneous
  Country: US (occurrence: US)
  Receive Date: 20140225
  Receipt Date: 20140409
  Transmission Date: 20141212
  Serious: Yes (Death)
  Sender: FDA-Public Use
  Company Number: US-ALLERGAN-1403417US

PATIENT
  Age: 84 Year
  Sex: Female
  Weight: 71.2 kg

DRUGS (1)
  1. BOTOX [Suspect]
     Indication: DYSTONIA
     Dosage: UNK UNK, SINGLE
     Route: 030
     Dates: start: 20131125, end: 20131125

REACTIONS (1)
  - Cardiac arrest [Fatal]
